FAERS Safety Report 21156649 (Version 2)
Quarter: 2022Q4

REPORT INFORMATION
  Report Type: Spontaneous
  Country: US (occurrence: US)
  Receive Date: 20220801
  Receipt Date: 20221116
  Transmission Date: 20230113
  Serious: No
  Sender: FDA-Public Use
  Company Number: US-ALKERMES INC.-ALK-2022-003683

PATIENT
  Age: 38 Year
  Sex: Female

DRUGS (1)
  1. LYBALVI [Suspect]
     Active Substance: OLANZAPINE\SAMIDORPHAN L-MALATE
     Indication: Bipolar I disorder
     Dosage: 5/10 MILLIGRAM, QD
     Route: 048
     Dates: start: 202207

REACTIONS (2)
  - Oedema peripheral [Recovered/Resolved]
  - Lethargy [Recovered/Resolved]
